FAERS Safety Report 10071957 (Version 1)
Quarter: 2014Q2

REPORT INFORMATION
  Report Type: Spontaneous
  Country: DK (occurrence: DK)
  Receive Date: 20140411
  Receipt Date: 20140411
  Transmission Date: 20141212
  Serious: Yes (Hospitalization)
  Sender: FDA-Public Use
  Company Number: DK-BRISTOL-MYERS SQUIBB COMPANY-20580940

PATIENT
  Age: 81 Year
  Sex: Female

DRUGS (7)
  1. ELIQUIS [Suspect]
     Indication: ATRIAL FIBRILLATION
     Dosage: STYRKE: 5 MG, REIN-05MAR14?FILM COATED TABLET
     Route: 048
     Dates: start: 20130930
  2. CARVEDILOL [Concomitant]
     Indication: HYPERTENSION
     Dates: start: 20130930
  3. DIURAL [Concomitant]
     Dates: start: 201402
  4. INNOHEP [Concomitant]
  5. KALEORID [Concomitant]
     Dates: start: 201402
  6. LATANOPROST [Concomitant]
  7. TRANDOLAPRIL [Concomitant]
     Dates: start: 20130930

REACTIONS (3)
  - Gastrointestinal haemorrhage [Recovered/Resolved]
  - Duodenitis [Recovered/Resolved]
  - Syncope [Recovered/Resolved]
